FAERS Safety Report 19389422 (Version 1)
Quarter: 2021Q2

REPORT INFORMATION
  Report Type: Spontaneous
  Country: IE (occurrence: IE)
  Receive Date: 20210608
  Receipt Date: 20210608
  Transmission Date: 20210717
  Serious: Yes (Life-Threatening, Hospitalization, Other)
  Sender: FDA-Public Use
  Company Number: IE-LUPIN PHARMACEUTICALS INC.-2021-08844

PATIENT
  Age: 4 Decade
  Sex: Female

DRUGS (3)
  1. THEOPHYLLINE [Suspect]
     Active Substance: THEOPHYLLINE ANHYDROUS
     Indication: ASTHMA
     Dosage: 12.6 GRAM
     Route: 065
  2. LORAZEPAM. [Suspect]
     Active Substance: LORAZEPAM
     Indication: SEIZURE
     Dosage: 8 MILLIGRAM
     Route: 042
  3. LANSOPRAZOLE. [Suspect]
     Active Substance: LANSOPRAZOLE
     Indication: DRUG THERAPY
     Dosage: 630 MILLIGRAM
     Route: 065

REACTIONS (13)
  - Dizziness [Unknown]
  - Vomiting [Unknown]
  - Intentional overdose [Unknown]
  - Nausea [Unknown]
  - Metabolic acidosis [Recovered/Resolved]
  - Sinus tachycardia [Unknown]
  - Seizure [Unknown]
  - Abdominal pain [Unknown]
  - Hyperhidrosis [Unknown]
  - Drug ineffective [Unknown]
  - Brain injury [Not Recovered/Not Resolved]
  - Respiratory acidosis [Recovered/Resolved]
  - Status epilepticus [Unknown]
